FAERS Safety Report 23668025 (Version 1)
Quarter: 2024Q1

REPORT INFORMATION
  Report Type: Spontaneous
  Country: US (occurrence: None)
  Receive Date: 20240322
  Receipt Date: 20240322
  Transmission Date: 20240409
  Serious: Yes (Life-Threatening, Hospitalization, Other)
  Sender: FDA-Public Use
  Company Number: None

PATIENT
  Age: 66 Year
  Sex: Male
  Weight: 140 kg

DRUGS (1)
  1. AXICABTAGENE CILOLEUCEL [Suspect]
     Active Substance: AXICABTAGENE CILOLEUCEL
     Indication: Diffuse large B-cell lymphoma
     Dosage: 68 ML ONE TIME INTRAVENOUS BOLUS?
     Route: 040
     Dates: start: 20240313, end: 20240313

REACTIONS (6)
  - Cytokine release syndrome [None]
  - Chills [None]
  - Oedema [None]
  - Immune effector cell-associated neurotoxicity syndrome [None]
  - Blood lactate dehydrogenase increased [None]
  - Haematuria [None]

NARRATIVE: CASE EVENT DATE: 20240317
